FAERS Safety Report 7006490-2 (Version None)
Quarter: 2010Q3

REPORT INFORMATION
  Report Type: 
  Country: None (occurrence: None)
  Receive Date: 20100921
  Receipt Date: 20100921
  Transmission Date: 20110219
  Serious: Yes (Hospitalization, Other)
  Sender: FDA-Public Use
  Company Number: None

PATIENT
  Sex: Female
  Weight: 68.0396 kg

DRUGS (1)
  1. AVIANE-21 [Suspect]
     Indication: CONTRACEPTION
     Dosage: PACK OF 28 PILLS 1 TIME PER DAY PO
     Route: 048
     Dates: start: 20070101, end: 20100615

REACTIONS (5)
  - DYSPAREUNIA [None]
  - PRODUCT SUBSTITUTION ISSUE [None]
  - VAGINITIS BACTERIAL [None]
  - VULVITIS [None]
  - VULVOVAGINAL MYCOTIC INFECTION [None]
